FAERS Safety Report 5242599-1 (Version None)
Quarter: 2007Q1

REPORT INFORMATION
  Report Type: 
  Country: None (occurrence: None)
  Receive Date: 20070214
  Receipt Date: 20070126
  Transmission Date: 20070707
  Serious: Yes (Life-Threatening, Hospitalization, Other)
  Sender: FDA-Public Use
  Company Number: DSA_29294_2007

PATIENT
  Age: 58 Year
  Sex: Female

DRUGS (5)
  1. DILTIAZEM [Suspect]
     Indication: HYPERTENSION
     Dosage: 600 MG Q DAY
  2. DILTIAZEM [Suspect]
     Indication: HYPERTENSION
     Dosage: 120 MG
  3. ATENOLOL [Suspect]
     Indication: HYPERTENSION
     Dosage: 100 MG Q DAY
  4. CAPTOPRIL [Concomitant]
  5. HYDROCHLOROTHIAZIDE [Concomitant]

REACTIONS (9)
  - ASTHENIA [None]
  - BLOOD CREATININE INCREASED [None]
  - BLOOD GLUCOSE INCREASED [None]
  - BLOOD POTASSIUM INCREASED [None]
  - BLOOD UREA INCREASED [None]
  - HYPOTENSION [None]
  - NODAL RHYTHM [None]
  - SINUS BRADYCARDIA [None]
  - SYNCOPE [None]
